FAERS Safety Report 16273404 (Version 2)
Quarter: 2019Q2

REPORT INFORMATION
  Report Type: Report from Study
  Country: US (occurrence: US)
  Receive Date: 20190506
  Receipt Date: 20190523
  Transmission Date: 20190711
  Serious: Yes (Other)
  Sender: FDA-Public Use
  Company Number: US-ROCHE-2292499

PATIENT
  Age: 65 Year
  Sex: Female
  Weight: 79 kg

DRUGS (23)
  1. PACLITAXEL. [Suspect]
     Active Substance: PACLITAXEL
     Indication: OVARIAN CANCER
     Dosage: ON 07/NOV/2018, SHE RECEIVED MOST RECENT DOSE OF PACLITAXEL 310 MG PRIOR TO AE ONSET.
     Route: 042
     Dates: start: 20180725
  2. LORAZEPAM. [Concomitant]
     Active Substance: LORAZEPAM
     Indication: NAUSEA
     Route: 065
     Dates: start: 20180929
  3. AMOXICILLIN. [Concomitant]
     Active Substance: AMOXICILLIN
     Indication: PROPHYLAXIS
  4. IBUPROFEN. [Concomitant]
     Active Substance: IBUPROFEN
     Indication: PAIN IN EXTREMITY
     Route: 065
     Dates: start: 20180815
  5. CARBOPLATIN. [Suspect]
     Active Substance: CARBOPLATIN
     Indication: OVARIAN CANCER
     Dosage: ON 07/NOV/2018, SHE RECEIVED MOST RECENT DOSE OF CARBOPLATIN 710 MG PRIOR TO AE ONSET.?CARBOPLATIN A
     Route: 042
     Dates: start: 20180725
  6. LORAZEPAM. [Concomitant]
     Active Substance: LORAZEPAM
     Indication: VOMITING
  7. ONDANSETRON [Concomitant]
     Active Substance: ONDANSETRON
     Indication: NAUSEA
     Route: 065
     Dates: start: 20180906
  8. MAGNESIUM [Concomitant]
     Active Substance: MAGNESIUM
     Indication: HYPOMAGNESAEMIA
     Route: 065
     Dates: start: 20181018
  9. PLACEBO [Suspect]
     Active Substance: UNSPECIFIED INGREDIENT
     Indication: OVARIAN CANCER
     Dosage: ON 12/MAR/2019, SHE RECEIVED MOST RECENT DOSE OF PLACEBO PRIOR TO AE ONSET.
     Route: 042
     Dates: start: 20180726
  10. LISINOPRIL. [Concomitant]
     Active Substance: LISINOPRIL
     Indication: CARDIAC FAILURE CONGESTIVE
     Dosage: 01 UNK 2010
     Route: 065
  11. LORAZEPAM. [Concomitant]
     Active Substance: LORAZEPAM
     Indication: ANXIETY
     Route: 065
     Dates: start: 20010712
  12. CHONDROITIN [Concomitant]
     Active Substance: CHONDROITIN
     Dosage: 01 UNK 2016
     Route: 065
  13. MARIJUANA [Concomitant]
     Active Substance: CANNABIS SATIVA SUBSP. INDICA TOP
     Indication: ANXIETY
  14. SENOKOT [Concomitant]
     Active Substance: SENNOSIDES
     Indication: CONSTIPATION
     Route: 065
     Dates: start: 20180727
  15. MIRALAX [Concomitant]
     Active Substance: POLYETHYLENE GLYCOL 3350
     Indication: CONSTIPATION
     Route: 065
     Dates: start: 20180727
  16. MARIJUANA [Concomitant]
     Active Substance: CANNABIS SATIVA SUBSP. INDICA TOP
     Indication: NAUSEA
     Dosage: 01 UNK 2010
     Route: 065
  17. ONDANSETRON [Concomitant]
     Active Substance: ONDANSETRON
     Indication: VOMITING
  18. BEVACIZUMAB. [Suspect]
     Active Substance: BEVACIZUMAB
     Indication: OVARIAN CANCER
     Dosage: ON 12/MAR/2019, SHE RECEIVED MOST RECENT DOSE 1100 MG PRIOR TO AE ONSET.
     Route: 042
     Dates: start: 20180815
  19. COLACE [Concomitant]
     Active Substance: DOCUSATE SODIUM
     Indication: CONSTIPATION
     Route: 065
     Dates: start: 20180601
  20. OXYCODONE [Concomitant]
     Active Substance: OXYCODONE
     Indication: PAIN IN EXTREMITY
     Route: 065
     Dates: start: 20180730
  21. CLARITIN [Concomitant]
     Active Substance: LORATADINE
     Indication: PAIN IN EXTREMITY
     Route: 065
     Dates: start: 20180815
  22. PAXIL [Concomitant]
     Active Substance: PAROXETINE HYDROCHLORIDE
     Indication: HOT FLUSH
     Route: 065
     Dates: start: 20181022
  23. FISH OIL [Concomitant]
     Active Substance: FISH OIL
     Route: 065
     Dates: start: 20180101

REACTIONS (1)
  - Cardiomyopathy [Not Recovered/Not Resolved]

NARRATIVE: CASE EVENT DATE: 20190321
